FAERS Safety Report 4775726-0 (Version None)
Quarter: 2005Q3

REPORT INFORMATION
  Report Type: 
  Country: None (occurrence: None)
  Receive Date: 20050914
  Receipt Date: 20050317
  Transmission Date: 20060218
  Serious: Yes (Hospitalization, Other)
  Sender: FDA-Public Use
  Company Number: 163-20785-05030443

PATIENT
  Age: 70 Year
  Sex: Male

DRUGS (11)
  1. THALOMID [Suspect]
     Indication: MYELODYSPLASTIC SYNDROME
     Dosage: 100 MG, DAILY, ORAL; 50MG, DAILY HS, ORAL
     Route: 048
     Dates: start: 20041223, end: 20050105
  2. THALOMID [Suspect]
     Indication: MYELODYSPLASTIC SYNDROME
     Dosage: 100 MG, DAILY, ORAL; 50MG, DAILY HS, ORAL
     Route: 048
     Dates: start: 20050106, end: 20050127
  3. PREVACID [Concomitant]
  4. CELEXA [Concomitant]
  5. ZOCOR [Concomitant]
  6. KLONOPIN [Concomitant]
  7. VITAMIN B COMPLEX (B-KOMPLEX ^LECIVA^) [Concomitant]
  8. CALCIUM SUPPLEMENT [Concomitant]
  9. PERCOCET [Concomitant]
  10. ATIVAN [Concomitant]
  11. FIBERCON (POLYCARBOPHIL CALCIUM) [Concomitant]

REACTIONS (1)
  - DEEP VEIN THROMBOSIS [None]
